FAERS Safety Report 15836374 (Version 1)
Quarter: 2019Q1

REPORT INFORMATION
  Report Type: Spontaneous
  Country: US (occurrence: US)
  Receive Date: 20190117
  Receipt Date: 20190117
  Transmission Date: 20190417
  Serious: Yes (Hospitalization)
  Sender: FDA-Public Use
  Company Number: None

PATIENT
  Age: 68 Year
  Sex: Male
  Weight: 112.5 kg

DRUGS (8)
  1. ASPIRIN. [Suspect]
     Active Substance: ASPIRIN
  2. TYLENOL [Suspect]
     Active Substance: ACETAMINOPHEN
  3. ELIQUIS [Suspect]
     Active Substance: APIXABAN
     Indication: ATRIAL FIBRILLATION
     Dates: end: 20190107
  4. TERAZOSIN HCL [Suspect]
     Active Substance: TERAZOSIN HYDROCHLORIDE
  5. LOSARTAN. [Concomitant]
     Active Substance: LOSARTAN
  6. PEN VK [Suspect]
     Active Substance: PENICILLIN V POTASSIUM
  7. DIOVAN [Concomitant]
     Active Substance: VALSARTAN
  8. ZOLOFT [Concomitant]
     Active Substance: SERTRALINE HYDROCHLORIDE

REACTIONS (5)
  - Atrial fibrillation [None]
  - Pain [None]
  - Haematoma [None]
  - Pericardial haemorrhage [None]
  - Bradycardia [None]

NARRATIVE: CASE EVENT DATE: 20190107
